FAERS Safety Report 18756535 (Version 1)
Quarter: 2021Q1

REPORT INFORMATION
  Report Type: Spontaneous
  Country: US (occurrence: US)
  Receive Date: 20210116
  Receipt Date: 20210116
  Transmission Date: 20210419
  Serious: Yes (Hospitalization)
  Sender: FDA-Public Use
  Company Number: None

PATIENT
  Age: 61 Year
  Sex: Male
  Weight: 109.8 kg

DRUGS (2)
  1. CISPLATIN. [Suspect]
     Active Substance: CISPLATIN
     Dates: end: 20201216
  2. 5?FLUOROURACIL (5?FU) [Suspect]
     Active Substance: FLUOROURACIL
     Dates: end: 20201220

REACTIONS (8)
  - Tremor [None]
  - Syncope [None]
  - Hypokalaemia [None]
  - Blood creatinine increased [None]
  - Asthenia [None]
  - Hypophosphataemia [None]
  - Hypomagnesaemia [None]
  - Anaemia [None]

NARRATIVE: CASE EVENT DATE: 20201226
